FAERS Safety Report 20591870 (Version 2)
Quarter: 2022Q1

REPORT INFORMATION
  Report Type: Report from Study
  Country: FR (occurrence: FR)
  Receive Date: 20220314
  Receipt Date: 20220315
  Transmission Date: 20220423
  Serious: Yes (Life-Threatening, Hospitalization)
  Sender: FDA-Public Use
  Company Number: FR-CELGENE-FRA-20220300883

PATIENT
  Age: 59 Year
  Sex: Female

DRUGS (25)
  1. CYTARABINE [Suspect]
     Active Substance: CYTARABINE
     Indication: Acute myeloid leukaemia
     Route: 065
     Dates: start: 20220122, end: 20220122
  2. CYTARABINE [Suspect]
     Active Substance: CYTARABINE
     Route: 065
     Dates: start: 20220123, end: 20220127
  3. CYTARABINE [Suspect]
     Active Substance: CYTARABINE
     Route: 065
     Dates: start: 20220128, end: 20220128
  4. DAUNORUBICIN [Suspect]
     Active Substance: DAUNORUBICIN
     Indication: Acute myeloid leukaemia
     Route: 065
     Dates: start: 20220122, end: 20220124
  5. ENASIDENIB [Suspect]
     Active Substance: ENASIDENIB
     Indication: Acute myeloid leukaemia
     Dosage: 100 MILLIGRAM
     Route: 065
     Dates: start: 20220122, end: 20220228
  6. CEFEPIME [Concomitant]
     Active Substance: CEFEPIME HYDROCHLORIDE
     Indication: Product used for unknown indication
     Dosage: 4MG/DAY
     Route: 065
     Dates: start: 20220223
  7. Mag [Concomitant]
     Indication: Product used for unknown indication
     Dosage: 2MG/10ML
     Route: 065
     Dates: start: 20220131
  8. ONDANSETRON [Concomitant]
     Active Substance: ONDANSETRON
     Indication: Product used for unknown indication
     Dosage: 8MG/10ML
     Route: 065
     Dates: start: 20220214
  9. ACETAMINOPHEN [Concomitant]
     Active Substance: ACETAMINOPHEN
     Indication: Product used for unknown indication
     Dosage: 2G/DAY
     Route: 065
     Dates: start: 20220207
  10. PRIMPERAN [Concomitant]
     Active Substance: METOCLOPRAMIDE HYDROCHLORIDE
     Indication: Product used for unknown indication
     Dosage: 10MG/2ML
     Route: 065
     Dates: start: 20220123
  11. FENTANYL [Concomitant]
     Active Substance: FENTANYL
     Indication: Product used for unknown indication
     Dosage: 720UG/ML
     Route: 065
     Dates: start: 20220204
  12. FENTANYL [Concomitant]
     Active Substance: FENTANYL
     Dosage: 130 QG
     Route: 065
     Dates: start: 20220205
  13. VIALEBEX [Concomitant]
     Active Substance: ALBUMIN HUMAN
     Indication: Product used for unknown indication
     Dosage: 100ML 20%
     Route: 065
     Dates: start: 20220219
  14. Daflon [Concomitant]
     Indication: Product used for unknown indication
     Dosage: 1G/DAY
     Route: 065
     Dates: start: 20220201
  15. MIRTAZAPINE [Concomitant]
     Active Substance: MIRTAZAPINE
     Indication: Product used for unknown indication
     Dosage: 15MG/DAY
     Route: 065
     Dates: start: 20220202
  16. MIRTAZAPINE [Concomitant]
     Active Substance: MIRTAZAPINE
     Dosage: 15MG/DAY
     Route: 065
     Dates: start: 20220228
  17. LEUCOVORIN CALCIUM [Concomitant]
     Active Substance: LEUCOVORIN CALCIUM
     Indication: Product used for unknown indication
     Dosage: 25MG/DAY
     Route: 065
     Dates: start: 20220124
  18. LEUCOVORIN CALCIUM [Concomitant]
     Active Substance: LEUCOVORIN CALCIUM
     Dosage: 25MG/DAY
     Route: 065
     Dates: start: 20220203
  19. PANTOPRAZOLE [Concomitant]
     Active Substance: PANTOPRAZOLE
     Indication: Product used for unknown indication
     Dosage: 20MG/DAY
     Route: 065
     Dates: start: 20220121
  20. SIVEXTRO [Concomitant]
     Active Substance: TEDIZOLID PHOSPHATE
     Indication: Product used for unknown indication
     Dosage: 200MG/DAY
     Route: 065
     Dates: start: 20220209
  21. SIVEXTRO [Concomitant]
     Active Substance: TEDIZOLID PHOSPHATE
     Dosage: 200MG/DAY
     Route: 065
     Dates: start: 20220223
  22. VALACYCLOVIR [Concomitant]
     Active Substance: VALACYCLOVIR HYDROCHLORIDE
     Indication: Product used for unknown indication
     Dosage: 1G/DAY
     Route: 065
     Dates: start: 20220205
  23. FUROSEMIDE [Concomitant]
     Active Substance: FUROSEMIDE
     Indication: Product used for unknown indication
     Dosage: 60 MG/DAY
     Route: 065
     Dates: start: 20220205
  24. VORICONAZOLE [Concomitant]
     Active Substance: VORICONAZOLE
     Indication: Product used for unknown indication
     Dosage: 200 MG/DAY
     Route: 065
     Dates: start: 20220223
  25. ENASIDENIB [Suspect]
     Active Substance: ENASIDENIB
     Indication: Acute myeloid leukaemia
     Route: 065
     Dates: start: 20220122, end: 20220228

REACTIONS (3)
  - Cardiac failure acute [Not Recovered/Not Resolved]
  - Pneumocystis jirovecii pneumonia [Not Recovered/Not Resolved]
  - Acute respiratory distress syndrome [Not Recovered/Not Resolved]

NARRATIVE: CASE EVENT DATE: 20220211
